FAERS Safety Report 15120025 (Version 3)
Quarter: 2018Q3

REPORT INFORMATION
  Report Type: Spontaneous
  Country: GB (occurrence: GB)
  Receive Date: 20180709
  Receipt Date: 20180917
  Transmission Date: 20181010
  Serious: Yes (Other)
  Sender: FDA-Public Use
  Company Number: PHHY2018GB072673

PATIENT
  Sex: Female

DRUGS (1)
  1. COSENTYX [Suspect]
     Active Substance: SECUKINUMAB
     Indication: PSORIATIC ARTHROPATHY
     Dosage: 300 MG, UNK
     Route: 065

REACTIONS (5)
  - Suicidal ideation [Unknown]
  - Aggression [Unknown]
  - Abnormal behaviour [Unknown]
  - Pulmonary embolism [Unknown]
  - Thinking abnormal [Unknown]
